FAERS Safety Report 7053651-2 (Version None)
Quarter: 2010Q4

REPORT INFORMATION
  Report Type: 
  Country: None (occurrence: None)
  Receive Date: 20101020
  Receipt Date: 20101011
  Transmission Date: 20110411
  Serious: Yes (Other)
  Sender: FDA-Public Use
  Company Number: JP-ROCHE-734112

PATIENT
  Age: 72 Year
  Sex: Female

DRUGS (3)
  1. TRASTUZUMAB [Suspect]
     Dosage: INITIAL DOSE
     Route: 065
  2. TRASTUZUMAB [Suspect]
     Route: 065
  3. TAXOTERE [Suspect]
     Route: 065

REACTIONS (2)
  - DECREASED APPETITE [None]
  - DEHYDRATION [None]
